FAERS Safety Report 7015846-3 (Version None)
Quarter: 2010Q3

REPORT INFORMATION
  Report Type: 
  Country: None (occurrence: None)
  Receive Date: 20100927
  Receipt Date: 20091120
  Transmission Date: 20110219
  Serious: No
  Sender: FDA-Public Use
  Company Number: US-ASTRAZENECA-2009SE28251

PATIENT
  Sex: Female
  Weight: 81.6 kg

DRUGS (5)
  1. ARIMIDEX [Suspect]
     Route: 048
  2. SINEMET [Concomitant]
  3. ZELAPAR [Concomitant]
  4. MOLAXICAM [Concomitant]
  5. EFFEXOR [Concomitant]

REACTIONS (3)
  - CONSTIPATION [None]
  - HAIR GROWTH ABNORMAL [None]
  - LOW DENSITY LIPOPROTEIN INCREASED [None]
